FAERS Safety Report 17861904 (Version 8)
Quarter: 2021Q2

REPORT INFORMATION
  Report Type: Report from Study
  Country: US (occurrence: US)
  Receive Date: 20200604
  Receipt Date: 20210402
  Transmission Date: 20210717
  Serious: No
  Sender: FDA-Public Use
  Company Number: NVSC2020US151159

PATIENT
  Sex: Female

DRUGS (1)
  1. BEOVU [Suspect]
     Active Substance: BROLUCIZUMAB-DBLL
     Indication: NEOVASCULAR AGE-RELATED MACULAR DEGENERATION
     Dosage: UNK (LEFT EYE)
     Route: 047
     Dates: start: 20200304

REACTIONS (4)
  - Photophobia [Recovering/Resolving]
  - Vitreous floaters [Recovering/Resolving]
  - Therapeutic product effect incomplete [Recovering/Resolving]
  - Eye pain [Recovered/Resolved]
